FAERS Safety Report 25334748 (Version 1)
Quarter: 2025Q2

REPORT INFORMATION
  Report Type: Report from Study
  Country: US (occurrence: US)
  Receive Date: 20250520
  Receipt Date: 20250520
  Transmission Date: 20250716
  Serious: Yes (Hospitalization)
  Sender: ROCHE
  Company Number: US-ROCHE-10000283017

PATIENT
  Age: 78 Year
  Sex: Male

DRUGS (11)
  1. XOLAIR PFS [Suspect]
     Active Substance: OMALIZUMAB
     Indication: Asthma
     Route: 058
  2. XOLAIR [Suspect]
     Active Substance: OMALIZUMAB
     Indication: Asthma
     Dosage: 300 MG/2ML
     Route: 058
     Dates: start: 20250505
  3. XOLAIR [Suspect]
     Active Substance: OMALIZUMAB
  4. DICLOFENAC SODIUM [Concomitant]
     Active Substance: DICLOFENAC SODIUM
     Route: 061
     Dates: start: 20250505
  5. ASTELIN [Concomitant]
     Active Substance: AZELASTINE HYDROCHLORIDE
     Dosage: 137 MCG
     Route: 045
  6. TEZSPIRE [Concomitant]
     Active Substance: TEZEPELUMAB-EKKO
  7. TRELEGY ELLIPTA [Concomitant]
     Active Substance: FLUTICASONE FUROATE\UMECLIDINIUM BROMIDE\VILANTEROL TRIFENATATE
     Route: 055
  8. ALBUTEROL [Concomitant]
     Active Substance: ALBUTEROL
     Indication: Wheezing
     Dosage: 90 MCG/ACTUATION ?2 PUFFS
     Route: 055
  9. ALBUTEROL [Concomitant]
     Active Substance: ALBUTEROL
     Indication: Dyspnoea
  10. FLONASE [Concomitant]
     Active Substance: FLUTICASONE PROPIONATE
     Dosage: 50 MCG/ACTUATION ?2 SPRAY
     Route: 045
  11. METOPROLOL [Concomitant]
     Active Substance: METOPROLOL

REACTIONS (12)
  - Chest pain [Unknown]
  - Dyspnoea exertional [Unknown]
  - COVID-19 [Unknown]
  - Bradycardia [Unknown]
  - Blood chloride decreased [Unknown]
  - Blood glucose increased [Unknown]
  - Blood creatinine increased [Unknown]
  - Glomerular filtration rate decreased [Unknown]
  - Blood parathyroid hormone increased [Unknown]
  - Protein urine present [Unknown]
  - Urinary occult blood positive [Unknown]
  - White blood cells urine positive [Unknown]
